FAERS Safety Report 7816532-X (Version None)
Quarter: 2011Q4

REPORT INFORMATION
  Report Type: 
  Country: None (occurrence: None)
  Receive Date: 20111017
  Receipt Date: 20111011
  Transmission Date: 20120403
  Serious: Yes (Death)
  Sender: FDA-Public Use
  Company Number: US-PFIZER INC-2011243306

PATIENT
  Sex: Male

DRUGS (1)
  1. ELLENCE [Suspect]
     Indication: OESOPHAGEAL CARCINOMA
     Dosage: 70 MG, EVERY 21 DAYS
     Dates: start: 20110328, end: 20111004

REACTIONS (1)
  - DEATH [None]
